FAERS Safety Report 14845134 (Version 1)
Quarter: 2018Q2

REPORT INFORMATION
  Report Type: Report from Study
  Country: None (occurrence: US)
  Receive Date: 20180504
  Receipt Date: 20180504
  Transmission Date: 20180711
  Serious: Yes (Other)
  Sender: FDA-Public Use
  Company Number: US-ABBVIE-18K-163-2339809-00

PATIENT
  Sex: Male

DRUGS (1)
  1. HUMIRA [Suspect]
     Active Substance: ADALIMUMAB
     Indication: RHEUMATOID ARTHRITIS
     Route: 058

REACTIONS (8)
  - Arthralgia [Unknown]
  - Spinal disorder [Unknown]
  - Procedural pain [Unknown]
  - Colon operation [Unknown]
  - Shoulder arthroplasty [Unknown]
  - Mobility decreased [Unknown]
  - Spinal operation [Unknown]
  - Hernia [Unknown]
